FAERS Safety Report 9882840 (Version 2)
Quarter: 2014Q2

REPORT INFORMATION
  Report Type: Spontaneous
  Country: BR (occurrence: BR)
  Receive Date: 20140207
  Receipt Date: 20140507
  Transmission Date: 20141212
  Serious: Yes (Hospitalization, Disabling)
  Sender: FDA-Public Use
  Company Number: BR-ASTRAZENECA-2014SE08187

PATIENT
  Age: 975 Month
  Sex: Female

DRUGS (9)
  1. FORASEQ [Suspect]
     Dosage: UNKNOWN DOSE, TWO TIMES A DAY.
     Route: 055
  2. CRESTOR [Suspect]
     Route: 048
     Dates: start: 201307
  3. DIUPRESS [Concomitant]
     Dosage: DAILY
     Route: 048
     Dates: start: 201307
  4. DIGOXIN [Concomitant]
     Dosage: DAILY
     Route: 048
     Dates: start: 201307
  5. CARDIZEM [Concomitant]
     Dosage: TWO TIMES A DAY
     Route: 048
  6. COZAAR [Concomitant]
     Dosage: DAILY
     Route: 048
  7. JANUMET [Concomitant]
     Indication: DIABETES MELLITUS
     Dosage: DAILY
     Route: 048
  8. PONDERA [Concomitant]
     Dosage: DAILY
     Route: 048
  9. AAS PROTECT [Concomitant]
     Dosage: DAILY
     Route: 048

REACTIONS (6)
  - Venous occlusion [Recovered/Resolved]
  - Myocardial infarction [Recovered/Resolved]
  - Haemorrhagic stroke [Recovered/Resolved with Sequelae]
  - Hemiplegia [Unknown]
  - Speech disorder [Recovering/Resolving]
  - Dysphagia [Unknown]
